FAERS Safety Report 14918705 (Version 4)
Quarter: 2018Q3

REPORT INFORMATION
  Report Type: Spontaneous
  Country: US (occurrence: US)
  Receive Date: 20180521
  Receipt Date: 20180907
  Transmission Date: 20181010
  Serious: Yes (Hospitalization, Other)
  Sender: FDA-Public Use
  Company Number: US-PFIZER INC-2018202607

PATIENT
  Age: 42 Year
  Sex: Female
  Weight: 63.49 kg

DRUGS (2)
  1. DILANTIN [Suspect]
     Active Substance: PHENYTOIN
     Dosage: 100 MG, 4 TIMES A DAY ON TUESDAY, THURSDAY AND SATURDAY (1 CAPSULE FOUR TIMES DAILY)
     Route: 048
     Dates: start: 1998, end: 1998
  2. DILANTIN [Suspect]
     Active Substance: PHENYTOIN
     Indication: SEIZURE
     Dosage: 100 MG, 4 TIMES A DAY ON TUESDAY, THURSDAY AND SATURDAY (THREE TIMES DAILY)
     Route: 048
     Dates: start: 1998, end: 1998

REACTIONS (7)
  - Intentional product misuse [Unknown]
  - Drug ineffective [Not Recovered/Not Resolved]
  - Loss of consciousness [Unknown]
  - Condition aggravated [Unknown]
  - Fall [Unknown]
  - Limb injury [Unknown]
  - Back injury [Unknown]

NARRATIVE: CASE EVENT DATE: 1998
